FAERS Safety Report 25878441 (Version 3)
Quarter: 2025Q4

REPORT INFORMATION
  Report Type: Report from Study
  Country: CA (occurrence: CA)
  Receive Date: 20251003
  Receipt Date: 20251205
  Transmission Date: 20260118
  Serious: Yes (Other)
  Sender: BIOCON
  Company Number: CA-MIMS-BCONMC-2056

PATIENT

DRUGS (5)
  1. HULIO [Suspect]
     Active Substance: ADALIMUMAB-FKJP
     Indication: Hidradenitis
     Dosage: 40 MILLIGRAM, QWEEK
     Route: 058
     Dates: start: 20220413
  2. HULIO [Suspect]
     Active Substance: ADALIMUMAB-FKJP
     Dosage: 40 MILLIGRAM
     Route: 065
  3. HULIO [Suspect]
     Active Substance: ADALIMUMAB-FKJP
  4. HULIO [Suspect]
     Active Substance: ADALIMUMAB-FKJP
  5. HULIO [Suspect]
     Active Substance: ADALIMUMAB-FKJP

REACTIONS (12)
  - Constipation [Recovered/Resolved]
  - Bladder dilatation [Unknown]
  - Micturition urgency [Unknown]
  - Urinary incontinence [Unknown]
  - Pain [Unknown]
  - Hidradenitis [Unknown]
  - Condition aggravated [Unknown]
  - Fall [Unknown]
  - Pain [Recovering/Resolving]
  - Cough [Unknown]
  - Lack of injection site rotation [Unknown]
  - Inappropriate schedule of product administration [Unknown]

NARRATIVE: CASE EVENT DATE: 20250913
